FAERS Safety Report 5108901-6 (Version None)
Quarter: 2006Q3

REPORT INFORMATION
  Report Type: 
  Country: None (occurrence: None)
  Receive Date: 20060918
  Receipt Date: 20060831
  Transmission Date: 20061208
  Serious: Yes (Hospitalization)
  Sender: FDA-Public Use
  Company Number: US200609000160

PATIENT
  Age: 14 Year
  Sex: Male

DRUGS (3)
  1. STRATTERA [Suspect]
     Dosage: 120 MG, DAILY (1/D)
  2. DEPAKOTE [Concomitant]
  3. METADATE (METHYLPHENIDATE HYDROCHLORIDE) [Concomitant]

REACTIONS (2)
  - APPENDICECTOMY [None]
  - PRESCRIBED OVERDOSE [None]
